FAERS Safety Report 10072892 (Version 3)
Quarter: 2014Q2

REPORT INFORMATION
  Report Type: Spontaneous
  Country: US (occurrence: US)
  Receive Date: 20140411
  Receipt Date: 20140617
  Transmission Date: 20141212
  Serious: Yes (Hospitalization)
  Sender: FDA-Public Use
  Company Number: US-BAXTER-2014BAX017642

PATIENT
  Sex: Male

DRUGS (18)
  1. DIANEAL LOW CALCIUM [Suspect]
     Indication: PERITONEAL DIALYSIS
     Route: 033
     Dates: start: 201310
  2. DIANEAL LOW CALCIUM [Suspect]
     Route: 033
     Dates: end: 20140507
  3. DIANEAL LOW CALCIUM [Suspect]
     Route: 033
     Dates: start: 20140508
  4. DIANEAL LOW CALCIUM [Suspect]
     Indication: PERITONEAL DIALYSIS
     Route: 033
     Dates: start: 201310
  5. DIANEAL LOW CALCIUM [Suspect]
     Route: 033
     Dates: end: 20140507
  6. DIANEAL LOW CALCIUM [Suspect]
     Route: 033
     Dates: start: 20140508
  7. DIANEAL LOW CALCIUM [Suspect]
     Indication: PERITONEAL DIALYSIS
     Route: 033
     Dates: start: 201310
  8. DIANEAL LOW CALCIUM [Suspect]
     Route: 033
     Dates: end: 20140507
  9. DIANEAL LOW CALCIUM [Suspect]
     Route: 033
     Dates: start: 20140508
  10. DIANEAL LOW CALCIUM (ULTRABAG) [Suspect]
     Indication: PERITONEAL DIALYSIS
     Route: 033
     Dates: start: 201310
  11. DIANEAL LOW CALCIUM (ULTRABAG) [Suspect]
     Route: 033
     Dates: end: 20140507
  12. DIANEAL LOW CALCIUM (ULTRABAG) [Suspect]
     Route: 033
     Dates: start: 20140508
  13. DIANEAL LOW CALCIUM (ULTRABAG) [Suspect]
     Indication: PERITONEAL DIALYSIS
     Route: 033
     Dates: start: 201310
  14. DIANEAL LOW CALCIUM (ULTRABAG) [Suspect]
     Route: 033
     Dates: end: 20140507
  15. DIANEAL LOW CALCIUM (ULTRABAG) [Suspect]
     Route: 033
     Dates: start: 20140508
  16. DIANEAL LOW CALCIUM (ULTRABAG) [Suspect]
     Indication: PERITONEAL DIALYSIS
     Route: 033
     Dates: start: 201310
  17. DIANEAL LOW CALCIUM (ULTRABAG) [Suspect]
     Route: 033
     Dates: end: 20140507
  18. DIANEAL LOW CALCIUM (ULTRABAG) [Suspect]
     Route: 033
     Dates: start: 20140508

REACTIONS (6)
  - Cardiac disorder [Recovering/Resolving]
  - Blood pressure decreased [Recovered/Resolved]
  - Cardiac valve replacement complication [Recovering/Resolving]
  - Blood glucose increased [Recovering/Resolving]
  - Adverse drug reaction [Recovering/Resolving]
  - Fluid overload [Recovering/Resolving]
